FAERS Safety Report 8612723-9 (Version None)
Quarter: 2012Q3

REPORT INFORMATION
  Report Type: 
  Country: None (occurrence: None)
  Receive Date: 20120822
  Receipt Date: 20110819
  Transmission Date: 20120928
  Serious: No
  Sender: FDA-Public Use
  Company Number: US-ASTRAZENECA-2011SE50264

PATIENT
  Age: 46 Year
  Sex: Male

DRUGS (23)
  1. LANTUS [Concomitant]
     Dosage: 100 UNIT/ML
  2. JANUMET [Concomitant]
     Dosage: 50-500 MG
  3. VITAMIN B-12 [Concomitant]
  4. COZAAR [Concomitant]
  5. REGLAN [Concomitant]
  6. SPIRIVA WITH HANDIHALER [Concomitant]
     Route: 055
  7. NORVASC [Concomitant]
  8. MEVACOR [Concomitant]
  9. SYMBICORT [Suspect]
     Dosage: 160/4.5 MCG
     Route: 055
  10. CELEBREX [Concomitant]
  11. CELEXA [Concomitant]
  12. MAXAIR [Concomitant]
     Route: 055
  13. ALBUTEROL [Concomitant]
     Route: 055
  14. ASPIRIN [Concomitant]
  15. COREG CR [Concomitant]
     Dosage: 40 MG 24 HR
  16. NEURONTIN [Concomitant]
  17. NIASPAN [Concomitant]
  18. ALDACTONE [Concomitant]
  19. IMDUR [Concomitant]
     Dosage: 60 MG 24 HR
  20. CALCIUM VITAMIN D [Concomitant]
  21. ULORIC [Concomitant]
  22. VICTOZA [Concomitant]
     Dosage: 0.6 MG.0.1 ML
  23. NITROSTAT [Concomitant]

REACTIONS (2)
  - DYSPNOEA [None]
  - CELLULITIS [None]
